FAERS Safety Report 5368198-9 (Version None)
Quarter: 2007Q2

REPORT INFORMATION
  Report Type: 
  Country: None (occurrence: None)
  Receive Date: 20070625
  Receipt Date: 20070621
  Transmission Date: 20071010
  Serious: Yes (Life-Threatening)
  Sender: FDA-Public Use
  Company Number: PHNU2007DE02226

PATIENT
  Age: 0 Year
  Sex: Female

DRUGS (2)
  1. PARACETAMOL [Suspect]
     Dosage: 30X500 MG
     Dates: start: 20030201, end: 20030201
  2. TEGRETOL [Suspect]
     Dosage: 30X400 MG
     Dates: start: 20030201, end: 20030201

REACTIONS (2)
  - ACCIDENTAL EXPOSURE [None]
  - DRUG TOXICITY [None]
